FAERS Safety Report 4648650-1 (Version None)
Quarter: 2005Q2

REPORT INFORMATION
  Report Type: 
  Country: None (occurrence: None)
  Receive Date: 20050427
  Receipt Date: 20050415
  Transmission Date: 20051028
  Serious: Yes (Hospitalization)
  Sender: FDA-Public Use
  Company Number: 2005061529

PATIENT
  Age: 79 Year
  Sex: Male
  Weight: 89 kg

DRUGS (7)
  1. PHENYTOIN [Suspect]
     Indication: CONVULSION
     Dosage: 300 MG (300 MG, 1 IN 1 D), ORAL
     Route: 048
     Dates: start: 20050310, end: 20050324
  2. RAMIPRIL [Concomitant]
  3. DIGOXIN [Concomitant]
  4. BUMETANIDE [Concomitant]
  5. ACETYLSALICYLIC ACID (ACETULSALICYLIC ACID) [Concomitant]
  6. WARFARIN SODIUM [Concomitant]
  7. SIMVASTATIN [Concomitant]

REACTIONS (1)
  - BONE MARROW DEPRESSION [None]
